FAERS Safety Report 8618528-7 (Version None)
Quarter: 2012Q3

REPORT INFORMATION
  Report Type: 
  Country: None (occurrence: None)
  Receive Date: 20120810
  Receipt Date: 20120727
  Transmission Date: 20120928
  Serious: Yes (Hospitalization)
  Sender: FDA-Public Use
  Company Number: NSR_00607_2012

PATIENT
  Age: 18 Month
  Sex: Female

DRUGS (1)
  1. PROPRANOLOL [Suspect]
     Dosage: SEE IMAGE
     Route: 048

REACTIONS (9)
  - NAUSEA [None]
  - BODY TEMPERATURE DECREASED [None]
  - COLD SWEAT [None]
  - PYREXIA [None]
  - VOMITING [None]
  - UNRESPONSIVE TO STIMULI [None]
  - HYPOGLYCAEMIA [None]
  - CONVULSION [None]
  - FEELING COLD [None]
